FAERS Safety Report 17460470 (Version 2)
Quarter: 2020Q1

REPORT INFORMATION
  Report Type: Spontaneous
  Country: DE (occurrence: DE)
  Receive Date: 20200225
  Receipt Date: 20200225
  Transmission Date: 20200409
  Serious: Yes (Death)
  Sender: FDA-Public Use
  Company Number: DE-BIOGEN-145642

PATIENT
  Sex: Female
  Weight: 43 kg

DRUGS (2)
  1. CORTISONE [Concomitant]
     Active Substance: CORTISONE
     Indication: MULTIPLE SCLEROSIS RELAPSE PROPHYLAXIS
     Route: 065
     Dates: start: 20001120, end: 20001124
  2. AVONEX [Suspect]
     Active Substance: INTERFERON BETA-1A
     Indication: MULTIPLE SCLEROSIS
     Route: 030
     Dates: start: 20000113, end: 20001116

REACTIONS (1)
  - Pulmonary embolism [Fatal]
